FAERS Safety Report 24905905 (Version 2)
Quarter: 2025Q3

REPORT INFORMATION
  Report Type: Report from Study
  Country: US (occurrence: US)
  Receive Date: 20250130
  Receipt Date: 20250725
  Transmission Date: 20251021
  Serious: Yes (Other)
  Sender: ALEXION PHARMACEUTICALS
  Company Number: US-AstraZeneca-CH-00793374A

PATIENT
  Age: 65 Year
  Sex: Male

DRUGS (2)
  1. TEZEPELUMAB [Suspect]
     Active Substance: TEZEPELUMAB
     Route: 065
  2. TEZEPELUMAB [Suspect]
     Active Substance: TEZEPELUMAB

REACTIONS (7)
  - Pulmonary fibrosis [Unknown]
  - Hypoxia [Unknown]
  - Obstructive sleep apnoea syndrome [Unknown]
  - Dyspnoea [Unknown]
  - Hypersomnia [Unknown]
  - Obesity [Unknown]
  - Asthma [Unknown]
